FAERS Safety Report 24417191 (Version 1)
Quarter: 2024Q4

REPORT INFORMATION
  Report Type: Spontaneous
  Country: US (occurrence: US)
  Receive Date: 20241009
  Receipt Date: 20241009
  Transmission Date: 20250115
  Serious: No
  Sender: GLENMARK
  Company Number: US-GLENMARK PHARMACEUTICALS-2024GMK092335

PATIENT

DRUGS (1)
  1. LACOSAMIDE [Suspect]
     Active Substance: LACOSAMIDE
     Indication: Seizure
     Dosage: 150 MILLIGRAM, BID
     Route: 065

REACTIONS (3)
  - Product dose omission issue [Unknown]
  - Product use issue [Unknown]
  - Product availability issue [Unknown]
